FAERS Safety Report 8137543-3 (Version None)
Quarter: 2012Q1

REPORT INFORMATION
  Report Type: 
  Country: None (occurrence: None)
  Receive Date: 20120215
  Receipt Date: 20120211
  Transmission Date: 20120608
  Serious: Yes (Death, Hospitalization)
  Sender: FDA-Public Use
  Company Number: US-US-EMD SERONO, INC.-7112920

PATIENT
  Sex: Female
  Weight: 77 kg

DRUGS (2)
  1. REBIF [Suspect]
     Indication: MULTIPLE SCLEROSIS
     Dates: start: 20021014, end: 20120201
  2. UNSPECIFIED MEDICATIONS (WAS ON A LOT OF MEDICATIONS HOWEVER DID NOT H [Concomitant]

REACTIONS (2)
  - CRANIOCEREBRAL INJURY [None]
  - RESPIRATORY DISORDER [None]
